FAERS Safety Report 25583719 (Version 3)
Quarter: 2025Q4

REPORT INFORMATION
  Report Type: Spontaneous
  Country: US (occurrence: US)
  Receive Date: 20250721
  Receipt Date: 20251007
  Transmission Date: 20260117
  Serious: No
  Sender: BRISTOL-MYERS SQUIBB COMPANY
  Company Number: US-BRISTOL-MYERS SQUIBB COMPANY-2025-101640

PATIENT
  Age: 56 Year
  Sex: Female

DRUGS (4)
  1. ORENCIA [Suspect]
     Active Substance: ABATACEPT
     Indication: Rheumatoid arthritis
     Dosage: CODE UNIT: 125 MG/ML
     Dates: start: 202210
  2. ORENCIA [Suspect]
     Active Substance: ABATACEPT
     Dates: start: 202210
  3. ORENCIA [Suspect]
     Active Substance: ABATACEPT
     Dates: start: 202210
  4. ENBREL [Concomitant]
     Active Substance: ETANERCEPT
     Indication: Product used for unknown indication
     Dosage: SURECLICK PF AUTOINJ

REACTIONS (2)
  - Drug ineffective [Unknown]
  - Arthritis [Unknown]
